FAERS Safety Report 6130060-1 (Version None)
Quarter: 2009Q1

REPORT INFORMATION
  Report Type: 
  Country: None (occurrence: None)
  Receive Date: 20090324
  Receipt Date: 20090318
  Transmission Date: 20090719
  Serious: Yes (Hospitalization, Other)
  Sender: FDA-Public Use
  Company Number: US-ABBOTT-09P-163-0563229-00

PATIENT
  Sex: Female
  Weight: 60.382 kg

DRUGS (4)
  1. HUMIRA [Suspect]
     Indication: CROHN'S DISEASE
     Route: 058
     Dates: start: 20081230, end: 20090318
  2. HUMIRA [Suspect]
     Dosage: 2 PENS Q2WKS
     Route: 058
     Dates: start: 20090318
  3. VITAMIN B-12 [Concomitant]
     Indication: MALABSORPTION
     Route: 050
  4. NUVARING [Concomitant]
     Indication: CONTRACEPTION

REACTIONS (3)
  - ABDOMINAL PAIN [None]
  - C-REACTIVE PROTEIN INCREASED [None]
  - SMALL INTESTINAL OBSTRUCTION [None]
